FAERS Safety Report 5902385-3 (Version None)
Quarter: 2008Q3

REPORT INFORMATION
  Report Type: 
  Country: None (occurrence: None)
  Receive Date: 20080925
  Receipt Date: 20080922
  Transmission Date: 20090109
  Serious: Yes (Hospitalization, Other)
  Sender: FDA-Public Use
  Company Number: CERZ-1000375

PATIENT
  Age: 75 Year
  Sex: Male

DRUGS (1)
  1. CEREZYME [Suspect]
     Indication: GAUCHER'S DISEASE
     Dosage: INTRAVENOUS
     Route: 042
     Dates: start: 19981123

REACTIONS (1)
  - CEREBROVASCULAR ACCIDENT [None]
